FAERS Safety Report 24798327 (Version 4)
Quarter: 2025Q1

REPORT INFORMATION
  Report Type: Report from Study
  Country: CA (occurrence: CA)
  Receive Date: 20250102
  Receipt Date: 20250221
  Transmission Date: 20250408
  Serious: Yes (Hospitalization)
  Sender: AMGEN
  Company Number: CA-AMGEN-CANSL2024254683

PATIENT
  Age: 71 Year
  Sex: Male

DRUGS (1)
  1. IMDELLTRA [Suspect]
     Active Substance: TARLATAMAB-DLLE
     Indication: Small cell lung cancer extensive stage
     Route: 065
     Dates: start: 20241217

REACTIONS (13)
  - Pain in extremity [Unknown]
  - Delirium [Recovering/Resolving]
  - Dyspnoea at rest [Unknown]
  - Hepatic neoplasm [Unknown]
  - Asthenia [Unknown]
  - Carbon dioxide increased [Recovering/Resolving]
  - Dysstasia [Unknown]
  - Lung disorder [Unknown]
  - Abdominal neoplasm [Unknown]
  - Cough [Unknown]
  - Paraesthesia [Unknown]
  - Chest pain [Recovering/Resolving]
  - Incorrect dose administered [Unknown]

NARRATIVE: CASE EVENT DATE: 20241201
